FAERS Safety Report 4720390-X (Version None)
Quarter: 2005Q3

REPORT INFORMATION
  Report Type: 
  Country: None (occurrence: None)
  Receive Date: 20050721
  Receipt Date: 20050610
  Transmission Date: 20060218
  Serious: Yes (Other)
  Sender: FDA-Public Use
  Company Number: PHBS2005DE08807

PATIENT
  Age: 69 Year
  Sex: Male

DRUGS (3)
  1. ZOMETA [Suspect]
     Indication: PLASMACYTOMA
     Route: 042
     Dates: start: 20040101
  2. CHEMOTHERAPEUTICS,OTHER [Concomitant]
     Route: 065
  3. RADIATION THERAPY [Concomitant]
     Route: 065
     Dates: start: 20040906

REACTIONS (3)
  - ASEPTIC NECROSIS BONE [None]
  - MALOCCLUSION [None]
  - PATHOLOGICAL FRACTURE [None]
